FAERS Safety Report 23803613 (Version 1)
Quarter: 2024Q2

REPORT INFORMATION
  Report Type: Spontaneous
  Country: CA (occurrence: CA)
  Receive Date: 20240501
  Receipt Date: 20240501
  Transmission Date: 20240715
  Serious: Yes (Other)
  Sender: FDA-Public Use
  Company Number: CA-TEVA-2020-CA-1177605

PATIENT
  Age: 59 Year
  Sex: Female

DRUGS (57)
  1. VENLAFAXINE HYDROCHLORIDE [Suspect]
     Active Substance: VENLAFAXINE HYDROCHLORIDE
     Indication: Depression
     Route: 065
  2. SUMATRIPTAN SUCCINATE [Suspect]
     Active Substance: SUMATRIPTAN SUCCINATE
     Indication: Migraine
     Route: 065
  3. CODEINE [Suspect]
     Active Substance: CODEINE
     Indication: Migraine
     Route: 065
  4. DEXAMETHASONE [Suspect]
     Active Substance: DEXAMETHASONE
     Indication: Migraine
     Route: 065
  5. MORPHINE [Suspect]
     Active Substance: MORPHINE
     Indication: Migraine
     Route: 065
  6. VORTIOXETINE HYDROBROMIDE [Suspect]
     Active Substance: VORTIOXETINE HYDROBROMIDE
     Indication: Depression
     Route: 065
  7. WELLBUTRIN [Suspect]
     Active Substance: BUPROPION HYDROCHLORIDE
     Indication: Depression
     Route: 065
  8. WELLBUTRIN [Suspect]
     Active Substance: BUPROPION HYDROCHLORIDE
     Indication: Depression
     Route: 065
  9. ABILIFY [Concomitant]
     Active Substance: ARIPIPRAZOLE
     Indication: Product used for unknown indication
     Route: 065
  10. BACLOFEN [Concomitant]
     Active Substance: BACLOFEN
     Indication: Product used for unknown indication
     Route: 065
  11. BACLOFEN [Concomitant]
     Active Substance: BACLOFEN
     Indication: Product used for unknown indication
     Route: 065
  12. BOTULINUM TOXIN TYPE A [Concomitant]
     Active Substance: BOTULINUM TOXIN TYPE A
     Indication: Product used for unknown indication
     Route: 065
  13. BOTULINUM TOXIN TYPE A [Concomitant]
     Active Substance: BOTULINUM TOXIN TYPE A
     Indication: Product used for unknown indication
     Route: 065
  14. BETAMETHASONE DIPROPIONATE\SALICYLIC ACID [Concomitant]
     Active Substance: BETAMETHASONE DIPROPIONATE\SALICYLIC ACID
     Indication: Product used for unknown indication
     Route: 065
  15. CIPRALEX [Concomitant]
     Active Substance: ESCITALOPRAM OXALATE
     Indication: Product used for unknown indication
     Route: 065
  16. CLONAZEPAM [Concomitant]
     Active Substance: CLONAZEPAM
     Indication: Product used for unknown indication
     Route: 065
  17. CYCLOBENZAPRINE [Concomitant]
     Active Substance: CYCLOBENZAPRINE
     Indication: Product used for unknown indication
     Route: 065
  18. CYMBALTA [Concomitant]
     Active Substance: DULOXETINE HYDROCHLORIDE
     Indication: Product used for unknown indication
     Route: 065
  19. ELAVIL [Concomitant]
     Active Substance: AMITRIPTYLINE HYDROCHLORIDE
     Indication: Product used for unknown indication
     Route: 065
  20. IMOVANE [Concomitant]
     Active Substance: ZOPICLONE
     Indication: Product used for unknown indication
     Route: 065
  21. LAMOTRIGINE [Concomitant]
     Active Substance: LAMOTRIGINE
     Indication: Product used for unknown indication
     Route: 065
  22. LITHIUM [Concomitant]
     Active Substance: LITHIUM
     Indication: Product used for unknown indication
     Route: 065
  23. LYRICA [Concomitant]
     Active Substance: PREGABALIN
     Indication: Product used for unknown indication
     Route: 065
  24. NAPROXEN [Concomitant]
     Active Substance: NAPROXEN
     Indication: Product used for unknown indication
     Route: 065
  25. NORFLEX [Concomitant]
     Active Substance: ORPHENADRINE CITRATE
     Indication: Product used for unknown indication
     Route: 065
  26. PAROXETINE HYDROCHLORIDE [Concomitant]
     Active Substance: PAROXETINE HYDROCHLORIDE\PAROXETINE HYDROCHLORIDE ANHYDROUS
     Indication: Product used for unknown indication
     Route: 065
  27. PREDNISONE [Concomitant]
     Active Substance: PREDNISONE
     Indication: Product used for unknown indication
     Route: 065
  28. ZOPICLONE [Concomitant]
     Active Substance: ZOPICLONE
     Indication: Product used for unknown indication
     Route: 065
  29. TEMAZEPAM [Concomitant]
     Active Substance: TEMAZEPAM
     Indication: Product used for unknown indication
     Route: 065
  30. TOPIRAMATE [Concomitant]
     Active Substance: TOPIRAMATE
     Indication: Product used for unknown indication
     Route: 065
  31. TRAZODONE [Concomitant]
     Active Substance: TRAZODONE HYDROCHLORIDE
     Indication: Product used for unknown indication
     Route: 065
  32. TYLENOL [Concomitant]
     Active Substance: ACETAMINOPHEN
     Indication: Product used for unknown indication
     Route: 065
  33. VENLAFAXINE HYDROCHLORIDE [Concomitant]
     Active Substance: VENLAFAXINE HYDROCHLORIDE
     Indication: Product used for unknown indication
     Route: 065
  34. ZOPICLONE [Concomitant]
     Active Substance: ZOPICLONE
     Indication: Product used for unknown indication
     Route: 065
  35. ZOPICLONE [Concomitant]
     Active Substance: ZOPICLONE
     Indication: Product used for unknown indication
     Route: 065
  36. GABAPENTIN [Concomitant]
     Active Substance: GABAPENTIN
     Indication: Product used for unknown indication
     Route: 065
  37. GABAPENTIN [Concomitant]
     Active Substance: GABAPENTIN
     Indication: Product used for unknown indication
     Route: 065
  38. BUPROPION HYDROBROMIDE [Suspect]
     Active Substance: BUPROPION HYDROBROMIDE
     Indication: Depression
     Route: 065
  39. BUPROPION HYDROBROMIDE [Suspect]
     Active Substance: BUPROPION HYDROBROMIDE
     Indication: Depression
     Route: 065
  40. ESCITALOPRAM OXALATE [Concomitant]
     Active Substance: ESCITALOPRAM OXALATE
     Indication: Product used for unknown indication
     Route: 065
  41. IMITREX [Suspect]
     Active Substance: SUMATRIPTAN SUCCINATE
     Indication: Migraine
     Route: 065
  42. CITALOPRAM HYDROBROMIDE [Suspect]
     Active Substance: CITALOPRAM HYDROBROMIDE
     Indication: Depression
     Route: 065
  43. CITALOPRAM HYDROBROMIDE [Suspect]
     Active Substance: CITALOPRAM HYDROBROMIDE
     Indication: Depression
     Route: 065
  44. DICLOFENAC [Suspect]
     Active Substance: DICLOFENAC
     Indication: Migraine
     Route: 065
  45. DICLOFENAC [Suspect]
     Active Substance: DICLOFENAC
     Indication: Migraine
     Route: 065
  46. FLUOXETINE [Suspect]
     Active Substance: FLUOXETINE HYDROCHLORIDE
     Indication: Migraine
     Route: 065
  47. FLUOXETINE [Suspect]
     Active Substance: FLUOXETINE HYDROCHLORIDE
     Indication: Migraine
     Route: 065
  48. FLUOXETINE [Suspect]
     Active Substance: FLUOXETINE HYDROCHLORIDE
     Indication: Migraine
     Route: 065
  49. FLUOXETINE [Suspect]
     Active Substance: FLUOXETINE HYDROCHLORIDE
     Indication: Migraine
     Route: 065
  50. VORTIOXETINE HYDROBROMIDE [Suspect]
     Active Substance: VORTIOXETINE HYDROBROMIDE
     Indication: Depression
     Route: 065
  51. TOPAMAX [Concomitant]
     Active Substance: TOPIRAMATE
     Indication: Product used for unknown indication
     Route: 065
  52. MORPHINE [Suspect]
     Active Substance: MORPHINE
     Indication: Migraine
     Route: 065
  53. CODEINE [Suspect]
     Active Substance: CODEINE
     Indication: Product used for unknown indication
     Route: 065
  54. BETAMETHASONE DIPROPIONATE [Concomitant]
     Active Substance: BETAMETHASONE DIPROPIONATE
     Indication: Product used for unknown indication
     Route: 065
  55. AIMOVIG [Suspect]
     Active Substance: ERENUMAB-AOOE
     Indication: Migraine
     Route: 065
  56. ALLOPURINOL [Concomitant]
     Active Substance: ALLOPURINOL
     Indication: Product used for unknown indication
     Route: 065
  57. ACETAMINOPHEN [Concomitant]
     Active Substance: ACETAMINOPHEN
     Indication: Product used for unknown indication
     Route: 065

REACTIONS (46)
  - Anxiety [Unknown]
  - Gastrooesophageal reflux disease [Unknown]
  - Headache [Unknown]
  - Hostility [Unknown]
  - Hyperhidrosis [Unknown]
  - Hypoaesthesia [Unknown]
  - Irritability [Unknown]
  - Libido increased [Unknown]
  - Memory impairment [Unknown]
  - Middle insomnia [Unknown]
  - Migraine [Unknown]
  - Body temperature increased [Unknown]
  - Muscle twitching [Unknown]
  - Nausea [Unknown]
  - Nightmare [Unknown]
  - Personality disorder [Unknown]
  - Poor quality sleep [Unknown]
  - Post-traumatic neck syndrome [Unknown]
  - Product use in unapproved indication [Unknown]
  - Rib fracture [Unknown]
  - Sedation [Unknown]
  - Concussion [Unknown]
  - Soft tissue injury [Unknown]
  - Somnolence [Unknown]
  - Sternal fracture [Unknown]
  - Tremor [Unknown]
  - Vertigo [Unknown]
  - Weight decreased [Unknown]
  - Weight increased [Unknown]
  - Diarrhoea [Unknown]
  - Dizziness [Unknown]
  - Dysgeusia [Unknown]
  - Dyspepsia [Unknown]
  - Feeling hot [Unknown]
  - Flushing [Unknown]
  - Off label use [Unknown]
  - Weight decreased [Unknown]
  - Sternal fracture [Unknown]
  - Contusion [Unknown]
  - Diarrhoea [Unknown]
  - Drug ineffective [Unknown]
  - Gastrooesophageal reflux disease [Unknown]
  - Hypoaesthesia [Unknown]
  - Incorrect route of product administration [Unknown]
  - Incorrect route of product administration [Unknown]
  - Libido increased [Unknown]
